FAERS Safety Report 20306559 (Version 1)
Quarter: 2022Q1

REPORT INFORMATION
  Report Type: Spontaneous
  Country: CN (occurrence: CN)
  Receive Date: 20220106
  Receipt Date: 20220106
  Transmission Date: 20220423
  Serious: Yes (Hospitalization)
  Sender: FDA-Public Use
  Company Number: CN-009507513-2112CHN010354

PATIENT
  Age: 57 Year
  Sex: Male

DRUGS (1)
  1. INVANZ [Suspect]
     Active Substance: ERTAPENEM SODIUM
     Indication: Anti-infective therapy
     Dosage: 1 GRAM, QD
     Route: 041
     Dates: start: 20210921, end: 20210926

REACTIONS (2)
  - Clostridium difficile colitis [Recovered/Resolved]
  - Dysbiosis [Recovered/Resolved]

NARRATIVE: CASE EVENT DATE: 20210926
